FAERS Safety Report 18433077 (Version 1)
Quarter: 2020Q4

REPORT INFORMATION
  Report Type: Spontaneous
  Country: TW (occurrence: TW)
  Receive Date: 20201027
  Receipt Date: 20201027
  Transmission Date: 20210114
  Serious: Yes (Hospitalization)
  Sender: FDA-Public Use
  Company Number: TW-UNICHEM PHARMACEUTICALS (USA) INC-UCM202010-001233

PATIENT
  Age: 26 Year
  Sex: Male

DRUGS (4)
  1. DIVALPROEX SODIUM. [Suspect]
     Active Substance: DIVALPROEX SODIUM
     Indication: SUICIDE ATTEMPT
  2. FLUDIAZEPAM [Suspect]
     Active Substance: FLUDIAZEPAM
     Indication: SUICIDE ATTEMPT
  3. TRAZODONE [Suspect]
     Active Substance: TRAZODONE HYDROCHLORIDE
     Indication: SUICIDE ATTEMPT
  4. ESTAZOLAM. [Suspect]
     Active Substance: ESTAZOLAM
     Indication: SUICIDE ATTEMPT

REACTIONS (11)
  - Acute respiratory failure [Recovered/Resolved]
  - Hypotonia [Recovered/Resolved]
  - Intentional overdose [Unknown]
  - Coma [Recovered/Resolved]
  - Dyspnoea [Recovered/Resolved]
  - Generalised tonic-clonic seizure [Recovered/Resolved]
  - Hyperammonaemia [Recovered/Resolved]
  - Suicide attempt [Unknown]
  - Mental status changes [Recovered/Resolved]
  - Drug level increased [Recovered/Resolved]
  - Depressed level of consciousness [Recovered/Resolved]
